FAERS Safety Report 13398342 (Version 1)
Quarter: 2017Q2

REPORT INFORMATION
  Report Type: Spontaneous
  Country: DE (occurrence: DE)
  Receive Date: 20170403
  Receipt Date: 20170403
  Transmission Date: 20170830
  Serious: Yes (Death, Congenital Anomaly, Other)
  Sender: FDA-Public Use
  Company Number: GXKR2017DE002014

PATIENT

DRUGS (7)
  1. VALSARTAN. [Suspect]
     Active Substance: VALSARTAN
     Indication: CONGESTIVE CARDIOMYOPATHY
     Dosage: 80 MG, QD, 0.-24.4 GW
     Route: 064
     Dates: start: 20151010, end: 20160330
  2. KANRENOL [Concomitant]
     Active Substance: CANRENOATE POTASSIUM
     Indication: CONGESTIVE CARDIOMYOPATHY
     Dosage: 100 MG, QD
     Route: 064
     Dates: start: 20160330, end: 20160330
  3. BETAMETHASONE. [Concomitant]
     Active Substance: BETAMETHASONE
     Indication: MATERNAL THERAPY TO ENHANCE FOETAL LUNG MATURITY
     Route: 064
     Dates: start: 20160414, end: 20160414
  4. LASIX [Concomitant]
     Active Substance: FUROSEMIDE
     Indication: CONGESTIVE CARDIOMYOPATHY
     Dosage: 40 MG, QD
     Route: 064
     Dates: start: 20160330, end: 20160418
  5. BISOPROLOL [Concomitant]
     Active Substance: BISOPROLOL
     Indication: CONGESTIVE CARDIOMYOPATHY
     Dosage: 5 MG, BID
     Route: 064
     Dates: start: 20160330, end: 20160418
  6. ASPIRIN. [Concomitant]
     Active Substance: ASPIRIN
     Indication: CONGESTIVE CARDIOMYOPATHY
     Dosage: 100 MG, QD
     Route: 064
     Dates: start: 20160330, end: 20160330
  7. OMEPRAZOL [Concomitant]
     Active Substance: OMEPRAZOLE
     Indication: CONGESTIVE CARDIOMYOPATHY
     Dosage: 20 MG, QD
     Route: 064
     Dates: start: 20160330, end: 20160330

REACTIONS (5)
  - Persistent foetal circulation [Fatal]
  - Death [Fatal]
  - Pulmonary hypoplasia [Fatal]
  - Bronchopulmonary dysplasia [Fatal]
  - Angiotensin converting enzyme inhibitor foetopathy [Fatal]

NARRATIVE: CASE EVENT DATE: 20160418
